FAERS Safety Report 8924227 (Version 1)
Quarter: 2012Q4

REPORT INFORMATION
  Report Type: Report from Study
  Country: CN (occurrence: CN)
  Receive Date: 20121126
  Receipt Date: 20121126
  Transmission Date: 20130627
  Serious: Yes (Death, Hospitalization)
  Sender: FDA-Public Use
  Company Number: CN-GLAXOSMITHKLINE-B0679987A

PATIENT
  Age: 61 Year
  Sex: Female
  Weight: 60 kg

DRUGS (2)
  1. ADEFOVIR [Suspect]
     Indication: HEPATITIS B
     Dosage: 10MG Per day
     Route: 048
     Dates: start: 20090929
  2. LAMIVUDINE-HBV [Suspect]
     Indication: HEPATITIS B
     Dosage: 100MG Per day
     Route: 048
     Dates: start: 20081031

REACTIONS (1)
  - Hepatocellular carcinoma [Fatal]
